FAERS Safety Report 9154042 (Version 1)
Quarter: 2013Q1

REPORT INFORMATION
  Report Type: Spontaneous
  Country: MA (occurrence: MA)
  Receive Date: 20130311
  Receipt Date: 20130311
  Transmission Date: 20140127
  Serious: Yes (Death, Life-Threatening, Hospitalization, Other)
  Sender: FDA-Public Use
  Company Number: MA-BRISTOL-MYERS SQUIBB COMPANY-17438664

PATIENT
  Sex: Female

DRUGS (3)
  1. ERBITUX SOLN FOR INF [Suspect]
     Indication: COLORECTAL CANCER METASTATIC
     Route: 042
     Dates: start: 20130225
  2. CAMPTO [Suspect]
     Indication: COLORECTAL CANCER METASTATIC
     Dosage: UNSPECIFIED DOSAGE
     Route: 042
     Dates: start: 20130225
  3. 5-FLUOROURACIL [Suspect]
     Indication: COLORECTAL CANCER METASTATIC
     Dosage: UNSPECIFIED DOSAGE
     Route: 042
     Dates: start: 20130225

REACTIONS (4)
  - Death [Fatal]
  - Respiratory distress [Unknown]
  - Hepatic cirrhosis [Unknown]
  - General physical health deterioration [Unknown]
